FAERS Safety Report 5886438-4 (Version None)
Quarter: 2008Q3

REPORT INFORMATION
  Report Type: 
  Country: None (occurrence: None)
  Receive Date: 20080917
  Receipt Date: 20080911
  Transmission Date: 20090109
  Serious: Yes (Other)
  Sender: FDA-Public Use
  Company Number: BR-AVENTIS-200818696GDDC

PATIENT
  Age: 6 Year
  Sex: Female
  Weight: 17 kg

DRUGS (1)
  1. FLAGYL PEDIATRICO [Suspect]
     Indication: GIARDIASIS
     Route: 048
     Dates: start: 20080910, end: 20080910

REACTIONS (3)
  - ANAPHYLACTIC SHOCK [None]
  - PRURITUS [None]
  - RASH [None]
